FAERS Safety Report 14203958 (Version 1)
Quarter: 2017Q4

REPORT INFORMATION
  Report Type: Spontaneous
  Country: HU (occurrence: HU)
  Receive Date: 20171120
  Receipt Date: 20171120
  Transmission Date: 20180321
  Serious: Yes (Death, Other)
  Sender: FDA-Public Use
  Company Number: HU-009507513-1711HUN007006

PATIENT
  Age: 75 Year
  Sex: Male
  Weight: 132 kg

DRUGS (7)
  1. VEROSPIRON [Concomitant]
     Active Substance: SPIRONOLACTONE
     Dosage: 50 MG, QD
  2. KEYTRUDA [Suspect]
     Active Substance: PEMBROLIZUMAB
     Indication: MALIGNANT MELANOMA
     Dosage: 264 MG, 20 CYCLES ALTOGETHER,EVERY THIRD WEEK
     Dates: start: 20160518, end: 20170807
  3. EDNYT [Concomitant]
     Dosage: 10 MG, QD
  4. KEYTRUDA [Suspect]
     Active Substance: PEMBROLIZUMAB
     Indication: LUNG CANCER METASTATIC
  5. MEFORAL [Concomitant]
     Active Substance: METFORMIN HYDROCHLORIDE
     Dosage: 1000 MG, BID
  6. ATORIS [Concomitant]
     Active Substance: ATORVASTATIN CALCIUM
     Dosage: 30 MG, QD
  7. ISOPTIN [Concomitant]
     Active Substance: VERAPAMIL HYDROCHLORIDE
     Dosage: 240 MG, QD
     Dates: start: 20160518, end: 20170807

REACTIONS (7)
  - Upper respiratory tract infection [Unknown]
  - Sudden death [Fatal]
  - Pyrexia [Unknown]
  - Pruritus [Unknown]
  - Abdominal discomfort [Unknown]
  - Cough [Unknown]
  - Malaise [Unknown]

NARRATIVE: CASE EVENT DATE: 2017
